FAERS Safety Report 23236184 (Version 1)
Quarter: 2023Q4

REPORT INFORMATION
  Report Type: Spontaneous
  Country: GB (occurrence: GB)
  Receive Date: 20231128
  Receipt Date: 20231128
  Transmission Date: 20240110
  Serious: Yes (Other)
  Sender: FDA-Public Use
  Company Number: GB-SUN PHARMACEUTICAL INDUSTRIES LTD-2023RR-420890

PATIENT
  Age: 19 Year
  Sex: Female
  Weight: 48 kg

DRUGS (7)
  1. CODEINE [Suspect]
     Active Substance: CODEINE
     Indication: Skin infection
     Dosage: 1-2 TABLETS 4 TIMES A DAY AS REQUIRED
     Route: 065
     Dates: start: 20230907
  2. ERYTHROMYCIN [Concomitant]
     Active Substance: ERYTHROMYCIN
     Indication: Skin infection
     Dosage: 2 DOSAGE FORM
     Route: 065
     Dates: start: 20230923, end: 20231022
  3. EPIPEN [Concomitant]
     Active Substance: EPINEPHRINE
     Indication: Skin infection
     Dosage: 300MICROGRAMS/0.3ML (1 IN 1,000). USE AS REQUIRED
     Route: 065
     Dates: start: 20230923, end: 20231105
  4. FLUCONAZOLE [Concomitant]
     Active Substance: FLUCONAZOLE
     Indication: Product used for unknown indication
     Dosage: TO BE TAKEN IMMEDIATELY
     Route: 065
     Dates: start: 20230907, end: 20231006
  5. POLYETHYLENE GLYCOLS [Concomitant]
     Active Substance: POLYETHYLENE GLYCOLS
     Indication: Product used for unknown indication
     Dosage: 2 DOSAGE FORM
     Route: 065
     Dates: start: 20230907, end: 20231007
  6. NAPROXEN [Concomitant]
     Active Substance: NAPROXEN
     Indication: Eczema
     Dosage: 1 DOSAGE FORM, 2 DOSE
     Route: 065
     Dates: start: 20231106
  7. ALBUTEROL [Concomitant]
     Active Substance: ALBUTEROL
     Indication: Asthma
     Dosage: 2 DOSAGE FORM
     Route: 055
     Dates: start: 20231024

REACTIONS (1)
  - Anaphylactic reaction [Recovered/Resolved]
